FAERS Safety Report 7602996-3 (Version None)
Quarter: 2011Q2

REPORT INFORMATION
  Report Type: 
  Country: None (occurrence: None)
  Receive Date: 20110630
  Receipt Date: 20110614
  Transmission Date: 20111010
  Serious: Yes (Death)
  Sender: FDA-Public Use
  Company Number: FK201101217

PATIENT
  Age: 13 Month
  Sex: Female

DRUGS (2)
  1. CISPLATIN [Suspect]
     Indication: CONGENITAL TERATOMA
  2. VEPESID [Suspect]
     Indication: CONGENITAL TERATOMA

REACTIONS (2)
  - CONGENITAL TERATOMA [None]
  - NEOPLASM RECURRENCE [None]
